FAERS Safety Report 10512661 (Version 1)
Quarter: 2014Q4

REPORT INFORMATION
  Report Type: Report from Study
  Country: US (occurrence: US)
  Receive Date: 20141012
  Receipt Date: 20141012
  Transmission Date: 20150528
  Serious: Yes (Other)
  Sender: FDA-Public Use
  Company Number: PHEH2014US020274

PATIENT
  Age: 95 Year
  Sex: Female

DRUGS (2)
  1. EXELON PATCH [Suspect]
     Active Substance: RIVASTIGMINE
     Indication: PRODUCT USED FOR UNKNOWN INDICATION
     Dosage: 9.5 MG, UNK
     Route: 062
  2. EXELON PATCH [Suspect]
     Active Substance: RIVASTIGMINE
     Dosage: 13.3 MG/24 H
     Route: 062

REACTIONS (9)
  - Depression [Unknown]
  - Disease progression [Unknown]
  - Bipolar disorder [Unknown]
  - Cognitive disorder [Unknown]
  - Speech disorder [Unknown]
  - Muscular weakness [Unknown]
  - Dementia [Unknown]
  - Dysstasia [Unknown]
  - Abnormal behaviour [Unknown]
